FAERS Safety Report 5699457-8 (Version None)
Quarter: 2008Q2

REPORT INFORMATION
  Report Type: 
  Country: None (occurrence: None)
  Receive Date: 20080407
  Receipt Date: 20080407
  Transmission Date: 20081010
  Serious: Yes (Death)
  Sender: FDA-Public Use
  Company Number: None

PATIENT
  Sex: Female
  Weight: 102.9665 kg

DRUGS (12)
  1. ERLOTINIB -GENENTECH [Suspect]
     Indication: METASTATIC RENAL CELL CARCINOMA
     Dosage: 150 MG, QD, PO
     Route: 048
     Dates: start: 20070412, end: 20070506
  2. RAPAMUNE [Suspect]
     Indication: METASTATIC RENAL CELL CARCINOMA
     Dosage: 2 MG, QD, PO
     Route: 048
     Dates: start: 20070412, end: 20070506
  3. METOPROLOL TARTRATE [Concomitant]
  4. NORVASC [Concomitant]
  5. SPIRONOLACTONE [Concomitant]
  6. POTASSIUM CHLORIDE [Concomitant]
  7. OXYCODONE HCL [Concomitant]
  8. LEVOTHYROXINE SODIUM [Concomitant]
  9. MULTI-VITAMIN [Concomitant]
  10. ASCORBIC ACID [Concomitant]
  11. ALEVE [Concomitant]
  12. RAMIPRIL [Concomitant]

REACTIONS (8)
  - ANAEMIA [None]
  - ATRIAL FIBRILLATION [None]
  - HYPERGLYCAEMIA [None]
  - HYPERTENSION [None]
  - HYPOTHYROIDISM [None]
  - ILEUS [None]
  - RENAL CANCER METASTATIC [None]
  - SEPSIS [None]
